FAERS Safety Report 6902219-4 (Version None)
Quarter: 2010Q3

REPORT INFORMATION
  Report Type: 
  Country: None (occurrence: None)
  Receive Date: 20100803
  Receipt Date: 20080423
  Transmission Date: 20110219
  Serious: No
  Sender: FDA-Public Use
  Company Number: US-PFIZER INC-2008035652

PATIENT
  Sex: Female

DRUGS (2)
  1. LYRICA [Suspect]
     Indication: MIGRAINE
     Dates: start: 20080401
  2. LYRICA [Suspect]
     Indication: NEURALGIA

REACTIONS (1)
  - FLATULENCE [None]
